FAERS Safety Report 6281957-3 (Version None)
Quarter: 2009Q3

REPORT INFORMATION
  Report Type: 
  Country: None (occurrence: None)
  Receive Date: 20090724
  Receipt Date: 20090720
  Transmission Date: 20100115
  Serious: Yes (Hospitalization)
  Sender: FDA-Public Use
  Company Number: AU-BRISTOL-MYERS SQUIBB COMPANY-14709232

PATIENT
  Age: 72 Year
  Sex: Female

DRUGS (5)
  1. KARVEZIDE [Suspect]
     Indication: ESSENTIAL HYPERTENSION
     Dosage: 1 DF=300/12.5 MG
     Dates: start: 20060104, end: 20080104
  2. ATENOLOL [Concomitant]
  3. PRAVASTATIN SODIUM [Concomitant]
     Indication: METABOLIC DISORDER
  4. SOMAC [Concomitant]
  5. ZANIDIP [Concomitant]

REACTIONS (1)
  - HYPONATRAEMIA [None]
